FAERS Safety Report 24432599 (Version 1)
Quarter: 2024Q4

REPORT INFORMATION
  Report Type: Report from Study
  Country: CN (occurrence: CN)
  Receive Date: 20241014
  Receipt Date: 20241014
  Transmission Date: 20250115
  Serious: Yes (Death, Other)
  Sender: ROCHE
  Company Number: CN-ROCHE-10000101400

PATIENT

DRUGS (5)
  1. RITUXIMAB [Suspect]
     Active Substance: RITUXIMAB
     Indication: Non-Hodgkin^s lymphoma
     Route: 065
  2. CYCLOPHOSPHAMIDE [Suspect]
     Active Substance: CYCLOPHOSPHAMIDE
     Indication: Non-Hodgkin^s lymphoma
     Route: 065
  3. DOXORUBICIN [Suspect]
     Active Substance: DOXORUBICIN
     Indication: Non-Hodgkin^s lymphoma
     Route: 065
  4. VINCRISTINE [Suspect]
     Active Substance: VINCRISTINE
     Indication: Non-Hodgkin^s lymphoma
     Route: 065
  5. PREDNISONE [Suspect]
     Active Substance: PREDNISONE
     Indication: Non-Hodgkin^s lymphoma
     Route: 065

REACTIONS (10)
  - Pneumonitis [Fatal]
  - Interstitial lung disease [Unknown]
  - Bacterial infection [Unknown]
  - Viral infection [Unknown]
  - Fungal infection [Unknown]
  - Pneumocystis jirovecii infection [Unknown]
  - Tuberculosis [Unknown]
  - Infection [Unknown]
  - Haemophagocytic lymphohistiocytosis [Unknown]
  - Acute respiratory distress syndrome [Unknown]
